FAERS Safety Report 6687356-4 (Version None)
Quarter: 2010Q2

REPORT INFORMATION
  Report Type: 
  Country: None (occurrence: None)
  Receive Date: 20100415
  Receipt Date: 20100406
  Transmission Date: 20101027
  Serious: Yes (Other)
  Sender: FDA-Public Use
  Company Number: 1000011536

PATIENT
  Age: 51 Year
  Sex: Female

DRUGS (2)
  1. CELEXA [Suspect]
     Dosage: 10 MG (10 MG, 1 IN 1 D)
  2. CELEXA [Suspect]
     Dosage: 10 MG (10 MG, 1 IN 1 D)

REACTIONS (3)
  - DISTURBANCE IN ATTENTION [None]
  - INSOMNIA [None]
  - MEMORY IMPAIRMENT [None]
